FAERS Safety Report 15152691 (Version 1)
Quarter: 2018Q3

REPORT INFORMATION
  Report Type: Spontaneous
  Country: US (occurrence: US)
  Receive Date: 20180717
  Receipt Date: 20180717
  Transmission Date: 20181010
  Serious: No
  Sender: FDA-Public Use
  Company Number: US-APOTEX-2017AP016217

PATIENT
  Sex: Female

DRUGS (3)
  1. ATORVASTATIN CALCIUM. [Suspect]
     Active Substance: ATORVASTATIN CALCIUM
     Dosage: 80 MG, UNK
     Route: 065
     Dates: start: 201610
  2. ATORVASTATIN CALCIUM. [Suspect]
     Active Substance: ATORVASTATIN CALCIUM
     Dosage: 20 MG, UNK
     Route: 065
  3. ATORVASTATIN CALCIUM. [Suspect]
     Active Substance: ATORVASTATIN CALCIUM
     Indication: PRODUCT USED FOR UNKNOWN INDICATION
     Dosage: 40 MG, UNK
     Route: 065
     Dates: start: 20160524

REACTIONS (11)
  - Hypoaesthesia [Unknown]
  - Muscle spasms [Unknown]
  - Malaise [Unknown]
  - Insomnia [Unknown]
  - Gait disturbance [Unknown]
  - Alopecia [Unknown]
  - Depression [Unknown]
  - Violence-related symptom [Unknown]
  - Incorrect dose administered [Unknown]
  - Condition aggravated [Unknown]
  - Pain [Unknown]
